FAERS Safety Report 9179825 (Version 1)
Quarter: 2013Q1

REPORT INFORMATION
  Report Type: Spontaneous
  Country: FR (occurrence: FR)
  Receive Date: 20130321
  Receipt Date: 20130321
  Transmission Date: 20140127
  Serious: Yes (Life-Threatening, Other)
  Sender: FDA-Public Use
  Company Number: FR-PFIZER INC-2013088227

PATIENT
  Age: 49 Year
  Sex: Female

DRUGS (17)
  1. ZOLOFT [Suspect]
     Dosage: UNK
     Route: 048
  2. ZOLOFT [Suspect]
     Dosage: UNK
     Route: 048
     Dates: start: 20130112
  3. EFFEXOR LP [Suspect]
     Dosage: UNK
     Route: 048
  4. EFFEXOR LP [Suspect]
     Dosage: UNK
     Route: 048
     Dates: start: 20130112
  5. TERCIAN [Suspect]
     Dosage: UNK
     Route: 048
  6. TERCIAN [Suspect]
     Dosage: UNK
     Route: 048
     Dates: start: 20130112
  7. ANAFRANIL [Suspect]
     Dosage: 75 MG, 1X/DAY
     Route: 048
     Dates: end: 2013
  8. ANAFRANIL [Suspect]
     Dosage: UNK
     Route: 048
     Dates: start: 20130112
  9. LYSANXIA [Suspect]
     Dosage: 10 MG TABLET IN THE EVENING
     Route: 048
     Dates: end: 2013
  10. LYSANXIA [Suspect]
     Dosage: APPROXIMATELY 42 TABLETS
     Route: 048
     Dates: start: 20130112
  11. IMOVANE [Suspect]
     Dosage: 1 DF (DOSE UNSPECIFIED) 1X/DAY AT BEDTIME
     Route: 048
     Dates: end: 2013
  12. IMOVANE [Suspect]
     Dosage: UNK
     Route: 048
     Dates: start: 20130112
  13. XEROQUEL [Suspect]
     Dosage: UNK
     Route: 048
  14. XEROQUEL [Suspect]
     Dosage: UNK
     Route: 048
     Dates: start: 20130112
  15. ABILIFY [Suspect]
     Dosage: UNK
     Route: 048
  16. ABILIFY [Suspect]
     Dosage: UNK
     Route: 048
     Dates: start: 20130112
  17. RIVOTRIL [Concomitant]
     Dosage: UNK

REACTIONS (7)
  - Toxicity to various agents [Recovered/Resolved]
  - Acute respiratory distress syndrome [Recovered/Resolved]
  - Pneumonia aspiration [Recovered/Resolved]
  - Electrocardiogram QT prolonged [Recovered/Resolved]
  - Bezoar [Recovered/Resolved]
  - Suicide attempt [Recovered/Resolved]
  - Oliguria [Unknown]
